FAERS Safety Report 19523858 (Version 1)
Quarter: 2021Q3

REPORT INFORMATION
  Report Type: Spontaneous
  Country: US (occurrence: US)
  Receive Date: 20210712
  Receipt Date: 20210712
  Transmission Date: 20211014
  Serious: Yes (Other)
  Sender: FDA-Public Use
  Company Number: US-ENDO PHARMACEUTICALS INC-2021-005289

PATIENT
  Age: 78 Year
  Sex: Female

DRUGS (2)
  1. RANITIDINE HYDROCHLORIDE. [Suspect]
     Active Substance: RANITIDINE HYDROCHLORIDE
     Indication: DYSPEPSIA
     Dosage: 150 MG, WEEKLY
     Route: 065
     Dates: start: 200401, end: 202001
  2. RANITIDINE. [Suspect]
     Active Substance: RANITIDINE
     Indication: DYSPEPSIA
     Dosage: 150 MG, WEEKLY
     Route: 065
     Dates: start: 200401, end: 202001

REACTIONS (2)
  - Colorectal cancer [Unknown]
  - Breast cancer [Recovering/Resolving]

NARRATIVE: CASE EVENT DATE: 20121101
